FAERS Safety Report 8795505 (Version 2)
Quarter: 2023Q4

REPORT INFORMATION
  Report Type: Report from Study
  Country: CA (occurrence: CA)
  Receive Date: 20120918
  Receipt Date: 20231116
  Transmission Date: 20240109
  Serious: Yes (Other)
  Sender: FDA-Public Use
  Company Number: CA-JNJFOC-20120902837

PATIENT
  Age: 65 Year
  Sex: Female
  Weight: 69 kg

DRUGS (2)
  1. REMICADE [Suspect]
     Active Substance: INFLIXIMAB
     Indication: Rheumatoid arthritis
     Route: 042
     Dates: start: 200812
  2. REMICADE [Suspect]
     Active Substance: INFLIXIMAB
     Indication: Arthritis
     Dosage: STRENGTH: 10 (MG/KG)
     Route: 042
     Dates: end: 20231113

REACTIONS (1)
  - Pulmonary embolism [Unknown]

NARRATIVE: CASE EVENT DATE: 20120821
